FAERS Safety Report 22139191 (Version 1)
Quarter: 2023Q1

REPORT INFORMATION
  Report Type: Spontaneous
  Country: ES (occurrence: ES)
  Receive Date: 20230327
  Receipt Date: 20230327
  Transmission Date: 20230417
  Serious: No
  Sender: FDA-Public Use
  Company Number: ES-PADAGIS-2023PAD00330

PATIENT

DRUGS (4)
  1. ACYCLOVIR [Suspect]
     Active Substance: ACYCLOVIR
     Indication: Skin lesion
     Dosage: UNK
     Route: 061
  2. CICLOPIROX OLAMINE [Suspect]
     Active Substance: CICLOPIROX OLAMINE
     Indication: Skin lesion
     Dosage: UNK
     Route: 061
  3. CLOXACILLIN [Suspect]
     Active Substance: CLOXACILLIN
     Indication: Skin lesion
     Dosage: UNK
     Route: 048
  4. TERBINAFINE [Suspect]
     Active Substance: TERBINAFINE
     Indication: Skin lesion
     Dosage: UNK
     Route: 048

REACTIONS (1)
  - Drug ineffective for unapproved indication [Unknown]
